FAERS Safety Report 6859411-7 (Version None)
Quarter: 2010Q3

REPORT INFORMATION
  Report Type: 
  Country: None (occurrence: None)
  Receive Date: 20100719
  Receipt Date: 20080225
  Transmission Date: 20110219
  Serious: No
  Sender: FDA-Public Use
  Company Number: US-PFIZER INC-2008019401

PATIENT
  Sex: Female
  Weight: 65.5 kg

DRUGS (5)
  1. CHANTIX [Suspect]
     Indication: SMOKING CESSATION THERAPY
     Dates: start: 20080219
  2. TENORETIC 100 [Concomitant]
  3. VALIUM [Concomitant]
  4. ACETYLSALICYLIC ACID [Concomitant]
  5. ANTITHROMBOTIC AGENTS [Concomitant]

REACTIONS (2)
  - CRYING [None]
  - DEPRESSION [None]
